FAERS Safety Report 7649178-7 (Version None)
Quarter: 2011Q3

REPORT INFORMATION
  Report Type: 
  Country: None (occurrence: None)
  Receive Date: 20110727
  Receipt Date: 20110706
  Transmission Date: 20111222
  Serious: Yes (Death)
  Sender: FDA-Public Use
  Company Number: 1053087-2011-00001

PATIENT
  Age: 52 Year
  Sex: Male
  Weight: 113.3993 kg

DRUGS (1)
  1. SODIUM CITRATE [Suspect]
     Indication: APHERESIS
     Dosage: 1 BAG PER PROCEDURE/IV
     Route: 042
     Dates: start: 20110630

REACTIONS (6)
  - EXCORIATION [None]
  - DIZZINESS [None]
  - POOR VENOUS ACCESS [None]
  - HAEMORRHAGE [None]
  - FALL [None]
  - INFUSION SITE EXTRAVASATION [None]
